FAERS Safety Report 8860201 (Version 1)
Quarter: 2012Q4

REPORT INFORMATION
  Report Type: 
  Country: DE (occurrence: DE)
  Receive Date: 20121025
  Receipt Date: 20121025
  Transmission Date: 20130627
  Serious: Yes (Hospitalization)
  Sender: FDA-Public Use
  Company Number: DE-ASTELLAS-2012EU009168

PATIENT
  Sex: Female
  Weight: 62 kg

DRUGS (6)
  1. PROGRAF [Suspect]
     Indication: TRANSPLANT REJECTION
     Dosage: UNK
     Route: 065
  2. MYFORTIC [Concomitant]
     Dosage: UNK
     Route: 065
  3. URBASON                            /00049601/ [Concomitant]
     Dosage: UNK
     Route: 065
  4. DEKRISTOL [Concomitant]
     Dosage: UNK
     Route: 065
  5. EMEND                              /01627301/ [Concomitant]
     Indication: NAUSEA
     Dosage: 125 mg, UID/QD
     Route: 048
     Dates: start: 20121007, end: 20121007
  6. NOVALGIN                           /06276704/ [Concomitant]
     Indication: PAIN
     Dosage: 30 UNK, UID/QD
     Route: 048
     Dates: start: 20121006, end: 20121006

REACTIONS (4)
  - Drug interaction [Unknown]
  - Drug interaction [Unknown]
  - Enzyme induction [Recovered/Resolved]
  - Immunosuppressant drug level decreased [Recovered/Resolved]
